FAERS Safety Report 14824806 (Version 6)
Quarter: 2018Q2

REPORT INFORMATION
  Report Type: Spontaneous
  Country: DE (occurrence: DE)
  Receive Date: 20180430
  Receipt Date: 20180628
  Transmission Date: 20180711
  Serious: Yes (Other)
  Sender: FDA-Public Use
  Company Number: DE-MYLANLABS-2018M1027304

PATIENT
  Age: 56 Year
  Sex: Female
  Weight: 59 kg

DRUGS (13)
  1. GYNOKADIN                          /00045401/ [Suspect]
     Active Substance: ESTRADIOL
     Indication: MENOPAUSAL SYMPTOMS
     Dosage: 2 UNK, UNK
     Route: 062
     Dates: start: 201701, end: 201705
  2. RAMIPRIL. [Concomitant]
     Active Substance: RAMIPRIL
     Indication: HYPERTENSION
     Dosage: UNK
  3. L-THYROXIN                         /00068001/ [Concomitant]
     Active Substance: LEVOTHYROXINE
     Indication: HYPOTHYROIDISM
     Dosage: 50 ?G, QD
  4. GYNOKADIN                          /00045401/ [Suspect]
     Active Substance: ESTRADIOL
     Dosage: 1 PUFF DAILY
     Route: 062
     Dates: start: 2012, end: 20180119
  5. ESTRADIOL. [Suspect]
     Active Substance: ESTRADIOL
     Dosage: 2 PUFFS DAILY ( UNKNOWN, 1 IN 1D)
     Route: 062
     Dates: start: 201711, end: 20180119
  6. PROGESTAN [Suspect]
     Active Substance: PROGESTERONE
     Indication: PREVENTION OF ENDOMETRIAL HYPERPLASIA
     Dosage: 1 CAPSULE DAILY (1 DOSAGE FORMS,1 IN 1 D)1 CAPSULE DAILY(FROM JAN MAY 2017:CAPSULE EVERY SECOND DAY;
     Route: 048
     Dates: start: 2012, end: 201701
  7. PROGESTAN [Suspect]
     Active Substance: PROGESTERONE
     Dosage: 1 CAPSULE DAILY (UNKNOWN, 1 IN 2 D)
     Route: 048
     Dates: start: 201711, end: 20180119
  8. LERCANIDIPINE [Concomitant]
     Active Substance: LERCANIDIPINE
     Indication: HYPERTENSION
     Dosage: UNK
  9. PASCOFLAIR [Concomitant]
     Indication: MENOPAUSAL DISORDER
  10. ESTRADIOL. [Suspect]
     Active Substance: ESTRADIOL
     Indication: MENOPAUSAL SYMPTOMS
     Dosage: 1 PUFF DAILY
     Route: 062
     Dates: start: 201701, end: 201705
  11. GYNOKADIN                          /00045401/ [Suspect]
     Active Substance: ESTRADIOL
     Dosage: 2 PUFFS DAILY
     Route: 062
     Dates: start: 201711, end: 20180119
  12. PROGESTAN [Suspect]
     Active Substance: PROGESTERONE
     Dosage: 1 CAPSULE EVERY SECOND EVENING. (1 DOSAGE FORMS, 1 IN 2 D)
     Route: 048
     Dates: start: 201701, end: 201705
  13. GYNOKADIN                          /00045401/ [Suspect]
     Active Substance: ESTRADIOL
     Indication: HORMONE REPLACEMENT THERAPY
     Dosage: 2 PUFFS DAILY. 2 PUFFS DAILY (FROM JAN-MAY 2017: 1 PUFF DAILY; STOPPED FROM MAY-NOV2017)
     Route: 062
     Dates: start: 2012, end: 201701

REACTIONS (7)
  - Blood alkaline phosphatase increased [Recovering/Resolving]
  - Blood lactate dehydrogenase increased [Recovering/Resolving]
  - Transaminases increased [Recovering/Resolving]
  - Asthenia [Unknown]
  - Gamma-glutamyltransferase increased [Recovering/Resolving]
  - Off label use [Unknown]
  - Thrombocytopenia [Recovering/Resolving]

NARRATIVE: CASE EVENT DATE: 201701
